FAERS Safety Report 10005309 (Version 1)
Quarter: 2014Q1

REPORT INFORMATION
  Report Type: Report from Study
  Country: IL (occurrence: IL)
  Receive Date: 20140312
  Receipt Date: 20140312
  Transmission Date: 20141002
  Serious: Yes (Other)
  Sender: FDA-Public Use
  Company Number: IL-BAXTER-2014BAX012159

PATIENT
  Sex: 0

DRUGS (3)
  1. ENDOXAN-1G [Suspect]
     Indication: PLASMA CELL MYELOMA
     Dosage: 3 TO 4 G/M2 ON DAY 0
     Route: 065
  2. GRANULOCYTE COLONY-STIMULATING FACTOR NOS [Suspect]
     Indication: PLASMA CELL MYELOMA
     Dosage: STARTING ON DAY 5 AND ADMINISTER UNTIL END OF STEM CELL COLLECTION
     Route: 065
  3. GRANULOCYTE COLONY-STIMULATING FACTOR NOS [Suspect]
     Dosage: 12 HOURS LATER
     Route: 065

REACTIONS (1)
  - Hypokalaemia [Unknown]
